FAERS Safety Report 24036827 (Version 1)
Quarter: 2024Q3

REPORT INFORMATION
  Report Type: Spontaneous
  Country: US (occurrence: US)
  Receive Date: 20240701
  Receipt Date: 20240701
  Transmission Date: 20241017
  Serious: Yes (Hospitalization)
  Sender: PFIZER
  Company Number: US-PFIZER INC-202400202708

PATIENT
  Age: 57 Year
  Sex: Female

DRUGS (1)
  1. OXBRYTA [Suspect]
     Active Substance: VOXELOTOR
     Dosage: 500 MG., 3 TABLETS, ONCE DAILY
     Route: 048
     Dates: start: 20220201

REACTIONS (1)
  - Abdominal discomfort [Unknown]
